FAERS Safety Report 4927778-2 (Version None)
Quarter: 2006Q1

REPORT INFORMATION
  Report Type: 
  Country: None (occurrence: None)
  Receive Date: 20060228
  Receipt Date: 20051031
  Transmission Date: 20060701
  Serious: No
  Sender: FDA-Public Use
  Company Number: US-GLAXOSMITHKLINE-A0581636A

PATIENT

DRUGS (1)
  1. ABACAVIR [Suspect]
     Indication: HIV INFECTION

REACTIONS (2)
  - DRUG HYPERSENSITIVITY [None]
  - NERVOUS SYSTEM DISORDER [None]
